FAERS Safety Report 11458191 (Version 2)
Quarter: 2015Q4

REPORT INFORMATION
  Report Type: Report from Study
  Country: US (occurrence: US)
  Receive Date: 20150904
  Receipt Date: 20151112
  Transmission Date: 20160304
  Serious: Yes (Hospitalization, Other)
  Sender: FDA-Public Use
  Company Number: US-AMGEN-USASL2015089149

PATIENT
  Age: 62 Year
  Sex: Male

DRUGS (3)
  1. VITAMIN B12 [Concomitant]
     Active Substance: CYANOCOBALAMIN
  2. NPLATE [Suspect]
     Active Substance: ROMIPLOSTIM
     Indication: IMMUNE THROMBOCYTOPENIC PURPURA
     Dosage: UNK
     Route: 065
     Dates: start: 2009
  3. AVONEX [Concomitant]
     Active Substance: INTERFERON BETA-1A
     Indication: MULTIPLE SCLEROSIS
     Dosage: UNK

REACTIONS (20)
  - Portal vein thrombosis [Unknown]
  - Type 2 diabetes mellitus [Recovering/Resolving]
  - Intestinal perforation [Unknown]
  - Spleen disorder [Unknown]
  - Mechanical ventilation [Recovered/Resolved]
  - Unevaluable event [Unknown]
  - Abasia [Unknown]
  - Skin discolouration [Unknown]
  - Muscular weakness [Unknown]
  - Decubitus ulcer [Unknown]
  - Skin burning sensation [Unknown]
  - Post procedural complication [Unknown]
  - Bedridden [Unknown]
  - Thrombosis [Unknown]
  - Splenomegaly [Unknown]
  - Rash macular [Unknown]
  - Fall [Unknown]
  - Platelet count decreased [Unknown]
  - Hospitalisation [Recovered/Resolved]
  - Pain [Unknown]

NARRATIVE: CASE EVENT DATE: 201412
